FAERS Safety Report 16487627 (Version 1)
Quarter: 2019Q3

REPORT INFORMATION
  Report Type: Spontaneous
  Country: US (occurrence: US)
  Receive Date: 20190626
  Receipt Date: 20190626
  Transmission Date: 20191004
  Serious: Yes (Disabling)
  Sender: FDA-Public Use
  Company Number: None

PATIENT
  Age: 48 Year
  Sex: Female
  Weight: 61.65 kg

DRUGS (2)
  1. EYE GLASSES FRAME (METAL) [Concomitant]
     Active Substance: DEVICE
  2. XIIDRA [Suspect]
     Active Substance: LIFITEGRAST
     Indication: DRY EYE
     Dosage: ?          QUANTITY:10 CAPSULE(S);?
     Route: 047

REACTIONS (5)
  - Blindness [None]
  - Application site pain [None]
  - Vitreous floaters [None]
  - Migraine [None]
  - Photopsia [None]

NARRATIVE: CASE EVENT DATE: 20190601
